FAERS Safety Report 9288296 (Version 1)
Quarter: 2013Q2

REPORT INFORMATION
  Report Type: Spontaneous
  Country: US (occurrence: None)
  Receive Date: 20130513
  Receipt Date: 20130513
  Transmission Date: 20140414
  Serious: Yes (Life-Threatening)
  Sender: FDA-Public Use
  Company Number: None

PATIENT
  Age: 83 Year
  Sex: Male
  Weight: 86 kg

DRUGS (9)
  1. RIVAROXABAN [Suspect]
     Indication: ATRIAL FIBRILLATION
     Dates: start: 20120201, end: 20130509
  2. SYNTHROID [Concomitant]
  3. LIDODERM PATCH [Concomitant]
  4. LOSARTAN [Concomitant]
  5. NIACIN [Concomitant]
  6. INSULIN [Concomitant]
  7. PROPAFENONE [Concomitant]
  8. VALACYCLOVIR [Concomitant]
  9. VITAMIN D [Concomitant]

REACTIONS (5)
  - Mouth haemorrhage [None]
  - Post procedural haemorrhage [None]
  - Tracheal haemorrhage [None]
  - Epistaxis [None]
  - Melaena [None]
